FAERS Safety Report 7817558-2 (Version None)
Quarter: 2011Q4

REPORT INFORMATION
  Report Type: 
  Country: None (occurrence: None)
  Receive Date: 20111017
  Receipt Date: 20111005
  Transmission Date: 20120403
  Serious: Yes (Other)
  Sender: FDA-Public Use
  Company Number: PHFR2011GB04058

PATIENT
  Sex: Female

DRUGS (4)
  1. FLUOXETINE [Concomitant]
  2. CLOZARIL [Suspect]
     Indication: SCHIZOPHRENIA
     Route: 048
     Dates: start: 20110615, end: 20110701
  3. CLOZARIL [Suspect]
     Dosage: UNK
  4. DEPAKOTE [Concomitant]

REACTIONS (9)
  - SKIN HAEMORRHAGE [None]
  - PYREXIA [None]
  - DISORIENTATION [None]
  - CONFUSIONAL STATE [None]
  - AGNOSIA [None]
  - PRURITUS [None]
  - OXYGEN SATURATION DECREASED [None]
  - HEART RATE INCREASED [None]
  - HYPERTENSION [None]
